FAERS Safety Report 5993175-4 (Version None)
Quarter: 2008Q4

REPORT INFORMATION
  Report Type: 
  Country: None (occurrence: None)
  Receive Date: 20081212
  Receipt Date: 20081204
  Transmission Date: 20090506
  Serious: Yes (Hospitalization)
  Sender: FDA-Public Use
  Company Number: GB-ABBOTT-08P-167-0491369-00

PATIENT
  Age: 41 Year
  Sex: Female
  Weight: 88.3 kg

DRUGS (4)
  1. REDUCTIL 10MG [Suspect]
     Indication: OBESITY
     Dates: start: 20080301, end: 20080404
  2. WARFARIN SODIUM [Concomitant]
     Indication: HEART VALVE REPLACEMENT
     Dosage: VARIABLE DOSE
  3. AMIODARONE HCL [Concomitant]
     Indication: CARDIAC VALVE DISEASE
     Dosage: OD TAKEN IN MORNING
  4. LEVOTHYROXINE SODIUM [Concomitant]
     Indication: THYROXINE THERAPY
     Dosage: OD TAKEN IN MORNING

REACTIONS (2)
  - ATRIAL FIBRILLATION [None]
  - PALPITATIONS [None]
